FAERS Safety Report 13124867 (Version 11)
Quarter: 2017Q4

REPORT INFORMATION
  Report Type: Report from Study
  Country: CA (occurrence: CA)
  Receive Date: 20170118
  Receipt Date: 20171109
  Transmission Date: 20180320
  Serious: Yes (Death, Other)
  Sender: FDA-Public Use
  Company Number: PHHY2016CA172996

PATIENT
  Age: 64 Year
  Sex: Female

DRUGS (6)
  1. MEKINIST [Suspect]
     Active Substance: TRAMETINIB DIMETHYL SULFOXIDE
     Dosage: 2 MG (STRENGTH 2 MG), QD
     Route: 048
  2. TAFINLAR [Suspect]
     Active Substance: DABRAFENIB MESYLATE
     Dosage: UNK
     Route: 048
     Dates: start: 20170110, end: 20170124
  3. AMLODIPINE [Suspect]
     Active Substance: AMLODIPINE BESYLATE
     Indication: PRODUCT USED FOR UNKNOWN INDICATION
     Route: 065
  4. DEXAMETHASONE. [Suspect]
     Active Substance: DEXAMETHASONE
     Indication: PRODUCT USED FOR UNKNOWN INDICATION
     Route: 065
  5. TAFINLAR [Suspect]
     Active Substance: DABRAFENIB MESYLATE
     Indication: METASTATIC MALIGNANT MELANOMA
     Dosage: 300 MG, QD
     Route: 048
     Dates: start: 20161212, end: 20161229
  6. MEKINIST [Suspect]
     Active Substance: TRAMETINIB DIMETHYL SULFOXIDE
     Indication: METASTATIC MALIGNANT MELANOMA
     Dosage: 0.5 MG (1 DF), QD
     Route: 048
     Dates: start: 20161212

REACTIONS (20)
  - Epistaxis [Unknown]
  - Tooth injury [Unknown]
  - Nasal discomfort [Recovering/Resolving]
  - Haemorrhage [Unknown]
  - Increased appetite [Unknown]
  - Nasal dryness [Unknown]
  - Hypotension [Unknown]
  - Pyrexia [Not Recovered/Not Resolved]
  - Pain in extremity [Unknown]
  - Vision blurred [Unknown]
  - Dry skin [Recovering/Resolving]
  - Peripheral swelling [Unknown]
  - Death [Fatal]
  - Body temperature increased [Unknown]
  - Eye disorder [Unknown]
  - Chills [Not Recovered/Not Resolved]
  - Diarrhoea [Recovering/Resolving]
  - Cataract [Unknown]
  - Vomiting [Recovering/Resolving]
  - Rash [Recovered/Resolved]

NARRATIVE: CASE EVENT DATE: 20161229
